FAERS Safety Report 4291621-8 (Version None)
Quarter: 2004Q1

REPORT INFORMATION
  Report Type: 
  Country: None (occurrence: None)
  Receive Date: 20040211
  Receipt Date: 20031027
  Transmission Date: 20041129
  Serious: No
  Sender: FDA-Public Use
  Company Number: US-GLAXOSMITHKLINE-A0431728A

PATIENT
  Age: 43 Year
  Sex: Female

DRUGS (5)
  1. IMITREX [Suspect]
     Indication: MIGRAINE
     Dosage: 12MG AS REQUIRED
     Route: 058
     Dates: start: 19960301, end: 20031027
  2. IMITREX [Suspect]
     Route: 058
  3. RISPERDAL [Concomitant]
  4. SOMA [Concomitant]
  5. PROZAC [Concomitant]

REACTIONS (2)
  - DRUG INEFFECTIVE [None]
  - PHARMACEUTICAL PRODUCT COMPLAINT [None]
